FAERS Safety Report 10546493 (Version 1)
Quarter: 2014Q4

REPORT INFORMATION
  Report Type: Spontaneous
  Country: US (occurrence: US)
  Receive Date: 20141027
  Receipt Date: 20141027
  Transmission Date: 20150529
  Serious: No
  Sender: FDA-Public Use
  Company Number: US-ABBVIE-13P-163-1175216-00

PATIENT

DRUGS (2)
  1. BCP [Concomitant]
     Indication: PRODUCT USED FOR UNKNOWN INDICATION
  2. LUPRON DEPOT [Suspect]
     Active Substance: LEUPROLIDE ACETATE
     Indication: PRODUCT USED FOR UNKNOWN INDICATION
     Dosage: TWICE A DAY AM/PM, STIMS STARTED ONCE A DAY

REACTIONS (6)
  - Stress [Unknown]
  - Fluid retention [Unknown]
  - Unevaluable event [Unknown]
  - Injection site pain [Unknown]
  - Crying [Unknown]
  - Fungal infection [Unknown]
